FAERS Safety Report 9432936 (Version 2)
Quarter: 2013Q3

REPORT INFORMATION
  Report Type: Report from Study
  Country: US (occurrence: US)
  Receive Date: 20130731
  Receipt Date: 20130814
  Transmission Date: 20140515
  Serious: Yes (Death)
  Sender: FDA-Public Use
  Company Number: US-ACTELION-A-NJ2013-86392

PATIENT
  Age: 31 Year
  Sex: Male

DRUGS (1)
  1. TRACLEER [Suspect]
     Indication: PULMONARY HYPERTENSION
     Dosage: UNK
     Route: 048
     Dates: end: 20130717

REACTIONS (2)
  - Renal failure chronic [Fatal]
  - Pulmonary hypertension [Fatal]
